FAERS Safety Report 8322378-9 (Version None)
Quarter: 2012Q2

REPORT INFORMATION
  Report Type: 
  Country: None (occurrence: None)
  Receive Date: 20120430
  Receipt Date: 20120423
  Transmission Date: 20120825
  Serious: Yes (Other)
  Sender: FDA-Public Use
  Company Number: NL-ABBOTT-12P-114-0929370-00

PATIENT
  Age: 45 Year
  Sex: Male

DRUGS (1)
  1. DEPAKENE [Suspect]
     Indication: AFFECTIVE DISORDER
     Route: 048
     Dates: start: 20111027, end: 20120207

REACTIONS (2)
  - NERVOUS SYSTEM DISORDER [None]
  - DELIRIUM [None]
